FAERS Safety Report 11038827 (Version 2)
Quarter: 2015Q3

REPORT INFORMATION
  Report Type: Spontaneous
  Country: US (occurrence: US)
  Receive Date: 20150416
  Receipt Date: 20150901
  Transmission Date: 20151125
  Serious: No
  Sender: FDA-Public Use
  Company Number: US-009507513-1504USA005282

PATIENT
  Age: 18 Year
  Sex: Female

DRUGS (2)
  1. PROPECIA [Suspect]
     Active Substance: FINASTERIDE
     Indication: ANDROGENETIC ALOPECIA
     Dosage: 1 MG, UNKNOWN
     Route: 048
     Dates: start: 1999, end: 2004
  2. PROPECIA [Suspect]
     Active Substance: FINASTERIDE
     Dosage: 1 MG, UNKNOWN
     Route: 048
     Dates: start: 2005, end: 2009

REACTIONS (3)
  - Testicular pain [Unknown]
  - Erectile dysfunction [Unknown]
  - Sexual dysfunction [Unknown]

NARRATIVE: CASE EVENT DATE: 2003
